FAERS Safety Report 7606930-1 (Version None)
Quarter: 2011Q3

REPORT INFORMATION
  Report Type: 
  Country: None (occurrence: None)
  Receive Date: 20110713
  Receipt Date: 20110706
  Transmission Date: 20111222
  Serious: Yes (Other)
  Sender: FDA-Public Use
  Company Number: US-PFIZER INC-2011141233

PATIENT
  Sex: Female

DRUGS (3)
  1. XALATAN [Suspect]
     Indication: GLAUCOMA
     Dosage: UNK
     Route: 047
  2. TIMOLOL [Suspect]
     Dosage: UNK
     Route: 047
  3. LUMIGAN [Suspect]
     Dosage: UNK
     Route: 047

REACTIONS (3)
  - OEDEMA MOUTH [None]
  - SWOLLEN TONGUE [None]
  - PHARYNGEAL OEDEMA [None]
